FAERS Safety Report 23377875 (Version 4)
Quarter: 2025Q2

REPORT INFORMATION
  Report Type: Report from Study
  Country: US (occurrence: US)
  Receive Date: 20240108
  Receipt Date: 20250611
  Transmission Date: 20250717
  Serious: Yes (Other)
  Sender: ABBVIE
  Company Number: US-ABBVIE-5573549

PATIENT
  Age: 75 Year
  Sex: Female

DRUGS (3)
  1. SKYRIZI [Suspect]
     Active Substance: RISANKIZUMAB-RZAA
     Indication: Psoriasis
     Route: 058
     Dates: start: 20230810
  2. SKYRIZI [Suspect]
     Active Substance: RISANKIZUMAB-RZAA
     Route: 058
  3. SKYRIZI [Suspect]
     Active Substance: RISANKIZUMAB-RZAA
     Route: 058

REACTIONS (15)
  - Macular degeneration [Not Recovered/Not Resolved]
  - Coronary artery occlusion [Not Recovered/Not Resolved]
  - Seasonal allergy [Unknown]
  - Psoriasis [Recovered/Resolved]
  - Blood glucose increased [Not Recovered/Not Resolved]
  - Paraesthesia [Not Recovered/Not Resolved]
  - Neoplasm malignant [Recovering/Resolving]
  - Haemorrhage [Unknown]
  - Nasopharyngitis [Recovering/Resolving]
  - Illness [Recovered/Resolved]
  - Oral mucosal eruption [Unknown]
  - Rash [Unknown]
  - COVID-19 [Unknown]
  - Pneumonia [Unknown]
  - Oral disorder [Unknown]

NARRATIVE: CASE EVENT DATE: 20231220
